FAERS Safety Report 11174981 (Version 1)
Quarter: 2015Q2

REPORT INFORMATION
  Report Type: Spontaneous
  Country: US (occurrence: None)
  Receive Date: 20150608
  Receipt Date: 20150608
  Transmission Date: 20150821
  Serious: Yes (Hospitalization)
  Sender: FDA-Public Use
  Company Number: None

PATIENT
  Age: 60 Year
  Sex: Female
  Weight: 53.07 kg

DRUGS (3)
  1. SOVALDI [Suspect]
     Active Substance: SOFOSBUVIR
     Indication: HEPATITIS C
     Route: 048
     Dates: start: 20140204, end: 20140326
  2. METHOTREXATE [Concomitant]
     Active Substance: METHOTREXATE
  3. SIMEPREVIR 150 [Suspect]
     Active Substance: SIMEPREVIR
     Indication: HEPATITIS C
     Route: 048
     Dates: start: 20140204, end: 20140326

REACTIONS (2)
  - Neoplasm recurrence [None]
  - Lymphoma [None]

NARRATIVE: CASE EVENT DATE: 20140326
